FAERS Safety Report 8867406 (Version 1)
Quarter: 2012Q4

REPORT INFORMATION
  Report Type: 
  Country: US (occurrence: US)
  Receive Date: 20121025
  Receipt Date: 20121025
  Transmission Date: 20130627
  Serious: No
  Sender: FDA-Public Use
  Company Number: US-AMGEN-USASP2012016364

PATIENT
  Age: 59 Year
  Weight: 63.49 kg

DRUGS (6)
  1. ENBREL [Suspect]
     Indication: PRODUCT USED FOR UNKNOWN INDICATION
     Dosage: 50 mg, qwk
     Route: 058
  2. TYLENOL PM [Concomitant]
     Dosage: UNK
  3. CENTRUM                            /00554501/ [Concomitant]
     Dosage: UNK
  4. METFORMIN [Concomitant]
     Dosage: 500 mg, UNK
  5. METOPROLOL [Concomitant]
     Dosage: 50 mg, UNK
  6. MOEXIPRIL [Concomitant]
     Dosage: UNK

REACTIONS (1)
  - Nasopharyngitis [Unknown]
